FAERS Safety Report 4764694-3 (Version None)
Quarter: 2005Q3

REPORT INFORMATION
  Report Type: 
  Country: None (occurrence: None)
  Receive Date: 20050909
  Receipt Date: 20050419
  Transmission Date: 20060218
  Serious: Yes (Hospitalization)
  Sender: FDA-Public Use
  Company Number: US-MERCK-0504USA03749

PATIENT
  Sex: Female

DRUGS (5)
  1. VIOXX [Suspect]
     Route: 048
     Dates: start: 20010101, end: 20021101
  2. ALPRAZOLAM [Concomitant]
     Indication: ANXIETY
     Route: 065
  3. ACIPHEX [Concomitant]
     Indication: DYSPEPSIA
     Route: 065
  4. LUMIGAN [Concomitant]
     Indication: GLAUCOMA
     Route: 065
  5. PREMARIN [Concomitant]
     Indication: HORMONE REPLACEMENT THERAPY
     Route: 065

REACTIONS (11)
  - BLOOD TRIGLYCERIDES INCREASED [None]
  - BRONCHITIS [None]
  - DYSPEPSIA [None]
  - GASTRIC DISORDER [None]
  - HERPES SIMPLEX [None]
  - HYPERTENSION [None]
  - MYOCARDIAL INFARCTION [None]
  - RESTLESS LEGS SYNDROME [None]
  - SHOULDER OPERATION [None]
  - SHOULDER PAIN [None]
  - SLEEP DISORDER [None]
